FAERS Safety Report 12555694 (Version 1)
Quarter: 2016Q3

REPORT INFORMATION
  Report Type: Spontaneous
  Country: US (occurrence: None)
  Receive Date: 20160713
  Receipt Date: 20160713
  Transmission Date: 20161109
  Serious: Yes (Disabling)
  Sender: FDA-Public Use
  Company Number: None

PATIENT
  Sex: Male
  Weight: 99.79 kg

DRUGS (32)
  1. SELENIUM [Concomitant]
     Active Substance: SELENIUM
  2. SAW PALMETTO [Concomitant]
     Active Substance: SAW PALMETTO
  3. SUPER B COMPLEX [Concomitant]
     Active Substance: CYANOCOBALAMIN\DEXPANTHENOL\NIACINAMIDE\PYRIDOXINE HYDROCHLORIDE\RIBOFLAVIN 5^-PHOSPHATE SODIUM\THIAMINE HYDROCHLORIDE\VITAMIN B COMPLEX
  4. CHROMIUM [Concomitant]
     Active Substance: CHROMIC CHLORIDE\CHROMIUM
  5. LOVASTATIN, 20 MG [Suspect]
     Active Substance: LOVASTATIN
     Indication: BLOOD CHOLESTEROL INCREASED
     Dosage: 1 TABLET AT BEDTIME
     Route: 048
  6. MILK THISTLE [Concomitant]
     Active Substance: MILK THISTLE
  7. GLUCOSAMINE CHONDROITIN [Concomitant]
     Active Substance: CHONDROITIN SULFATE (BOVINE)\GLUCOSAMINE HYDROCHLORIDE
  8. FOLIC ACID. [Concomitant]
     Active Substance: FOLIC ACID
  9. VITAMIN B12 [Concomitant]
     Active Substance: CYANOCOBALAMIN
  10. VITAMIN E [Concomitant]
     Active Substance: .ALPHA.-TOCOPHEROL
  11. VITAMIN C [Concomitant]
     Active Substance: ASCORBIC ACID
  12. DHEA [Concomitant]
     Active Substance: PRASTERONE
  13. ACETYL L-CARNITINE HCI [Concomitant]
  14. ALPHA LIPOIC ACID [Concomitant]
     Active Substance: .ALPHA.-LIPOIC ACID
  15. MAGNESIUM [Concomitant]
     Active Substance: MAGNESIUM
  16. TURMERIC CURCUMIN [Concomitant]
     Active Substance: TURMERIC
  17. VITAMIN A [Concomitant]
     Active Substance: VITAMIN A
  18. NIACIN. [Concomitant]
     Active Substance: NIACIN
  19. DHA [Concomitant]
     Active Substance: DIETARY SUPPLEMENT
  20. GINKO BILOBA [Concomitant]
     Active Substance: GINKGO
  21. PROBIOTIC MULTI-ENZYME [Concomitant]
  22. VITAMIN B6 [Concomitant]
     Active Substance: PYRIDOXINE HYDROCHLORIDE
  23. ASPIRIN. [Concomitant]
     Active Substance: ASPIRIN
  24. CINNAMON. [Concomitant]
     Active Substance: CINNAMON
  25. D-3 [Concomitant]
     Active Substance: CHOLECALCIFEROL
  26. GINGER ROOT [Concomitant]
     Active Substance: GINGER
  27. L-ARGININE [Concomitant]
     Active Substance: ARGININE
  28. LUTEIN [Concomitant]
     Active Substance: LUTEIN
  29. TESTOSTERONE CREAM [Concomitant]
     Active Substance: TESTOSTERONE
  30. FINASTERIDE. [Concomitant]
     Active Substance: FINASTERIDE
  31. L-LYSINE [Concomitant]
     Active Substance: LYSINE
  32. UBIQUINOL [Concomitant]
     Active Substance: UBIQUINOL

REACTIONS (9)
  - Cognitive disorder [None]
  - Tremor [None]
  - Weight decreased [None]
  - Carpal tunnel syndrome [None]
  - Depression [None]
  - Hypoaesthesia [None]
  - Paraesthesia [None]
  - Blood testosterone decreased [None]
  - Memory impairment [None]
